FAERS Safety Report 7880647-0 (Version None)
Quarter: 2011Q4

REPORT INFORMATION
  Report Type: 
  Country: None (occurrence: None)
  Receive Date: 20111101
  Receipt Date: 20111024
  Transmission Date: 20120403
  Serious: Yes (Other)
  Sender: FDA-Public Use
  Company Number: CHPA2011US14830

PATIENT
  Age: 23 Year
  Sex: Female

DRUGS (2)
  1. THERAFLU WARMING RELIEF DAYTIME MULTI-SYMPTOM COLD [Suspect]
     Indication: NASOPHARYNGITIS
     Dosage: 2 DF, UNK
     Route: 048
     Dates: start: 20111018, end: 20111019
  2. THERAFLU NIGHTTIME SEVERE COLD WARMING SYRUP [Suspect]
     Indication: NASOPHARYNGITIS
     Dosage: 2 TABLESPOONS, ONCE/SINGLE
     Route: 048
     Dates: start: 20111019, end: 20111019

REACTIONS (6)
  - AMNESIA [None]
  - DRUG ADMINISTRATION ERROR [None]
  - ANXIETY [None]
  - LOSS OF CONSCIOUSNESS [None]
  - HOT FLUSH [None]
  - DIZZINESS [None]
